FAERS Safety Report 7749373-2 (Version None)
Quarter: 2011Q3

REPORT INFORMATION
  Report Type: 
  Country: None (occurrence: None)
  Receive Date: 20110909
  Receipt Date: 20101026
  Transmission Date: 20111222
  Serious: Yes (Death, Hospitalization, Other)
  Sender: FDA-Public Use
  Company Number: 2011090016

PATIENT
  Age: 75 Year
  Sex: Female

DRUGS (10)
  1. MAXERAN (METOCLOPRAMIDE HCL) [Concomitant]
  2. NABILONE [Suspect]
     Dates: start: 20100913, end: 20100915
  3. METFORMIN HCL [Concomitant]
  4. CRESTOR [Concomitant]
  5. SCOPOLAMINE [Concomitant]
  6. GRAVOL (DIMENHYDRINATE) [Concomitant]
  7. IPILIMUMAB [Suspect]
     Indication: MALIGNANT MELANOMA
     Dosage: 150 MG (160 MG,1 IN 1 D),IV
     Route: 042
     Dates: start: 20100914, end: 20100914
  8. DILAUDID [Concomitant]
  9. ACETAMINOPHEN [Concomitant]
  10. DECADRON [Concomitant]

REACTIONS (13)
  - HYPOPHAGIA [None]
  - COMA [None]
  - LETHARGY [None]
  - CONFUSIONAL STATE [None]
  - GENERAL PHYSICAL HEALTH DETERIORATION [None]
  - CHEYNE-STOKES RESPIRATION [None]
  - HAEMORRHAGIC CEREBRAL INFARCTION [None]
  - PNEUMONIA [None]
  - OEDEMA PERIPHERAL [None]
  - NEOPLASM PROGRESSION [None]
  - METASTASES TO CENTRAL NERVOUS SYSTEM [None]
  - VASOGENIC CEREBRAL OEDEMA [None]
  - HYPOPNOEA [None]
